FAERS Safety Report 4397613-2 (Version None)
Quarter: 2004Q3

REPORT INFORMATION
  Report Type: 
  Country: None (occurrence: None)
  Receive Date: 20040714
  Receipt Date: 20040628
  Transmission Date: 20050211
  Serious: Yes (Hospitalization)
  Sender: FDA-Public Use
  Company Number: A-US2004-06719

PATIENT
  Age: 50 Year
  Sex: Female

DRUGS (13)
  1. TRACLEER [Suspect]
     Indication: PULMONARY HYPERTENSION
     Dosage: SEE IMAGE
     Route: 048
     Dates: start: 20040623, end: 20040706
  2. TRACLEER [Suspect]
     Indication: PULMONARY HYPERTENSION
     Dosage: SEE IMAGE
     Route: 048
     Dates: start: 20040707
  3. . [Concomitant]
  4. PROTONIX [Concomitant]
  5. REGLAN [Concomitant]
  6. COUMADIN [Concomitant]
  7. DEMADEX [Concomitant]
  8. POTASSIUM (POTASSIUM) [Concomitant]
  9. SPIRONOLACTONE [Concomitant]
  10. SLOW-MAG (MAGNESIUM CHLORIDE ANHYDROUS) [Concomitant]
  11. LANOXIN [Concomitant]
  12. PROCARDIA [Concomitant]
  13. ADALAT [Concomitant]

REACTIONS (3)
  - ABDOMINAL PAIN [None]
  - NAUSEA [None]
  - VOMITING [None]
